FAERS Safety Report 7305171-5 (Version None)
Quarter: 2011Q1

REPORT INFORMATION
  Report Type: 
  Country: None (occurrence: None)
  Receive Date: 20110222
  Receipt Date: 20110209
  Transmission Date: 20110831
  Serious: Yes (Hospitalization, Other)
  Sender: FDA-Public Use
  Company Number: IT-ELI_LILLY_AND_COMPANY-IT201102002968

PATIENT
  Age: 68 Year
  Sex: Male

DRUGS (9)
  1. ALIMTA [Suspect]
     Indication: NON-SMALL CELL LUNG CANCER
     Dosage: 500 MG/MQ, Q21
     Dates: start: 20110110
  2. VINORELBINE [Concomitant]
  3. VIT B12 [Concomitant]
  4. GEMZAR [Suspect]
     Indication: CHEMOTHERAPY
  5. FOLIC ACID [Concomitant]
  6. CARBOPLATIN [Concomitant]
  7. TARCEVA [Concomitant]
  8. CORTICOSTEROIDS [Concomitant]
  9. TAXOTERE [Concomitant]
     Dosage: 75MG/MQ UNK

REACTIONS (7)
  - PALLOR [None]
  - NEOPLASM MALIGNANT [None]
  - HOSPITALISATION [None]
  - PANCYTOPENIA [None]
  - PYREXIA [None]
  - VOMITING [None]
  - ASTHENIA [None]
